FAERS Safety Report 5755881-6 (Version None)
Quarter: 2008Q2

REPORT INFORMATION
  Report Type: 
  Country: None (occurrence: None)
  Receive Date: 20080602
  Receipt Date: 20080529
  Transmission Date: 20081010
  Serious: Yes (Other)
  Sender: FDA-Public Use
  Company Number: US-JNJFOC-20080600225

PATIENT
  Sex: Male

DRUGS (9)
  1. RISPERDAL CONSTA [Suspect]
     Indication: SCHIZOPHRENIA
  2. KLONOPIN [Concomitant]
     Indication: SCHIZOPHRENIA
  3. RENAGEL [Concomitant]
  4. ATIVAN [Concomitant]
  5. ANALAPRIL [Concomitant]
  6. COREG [Concomitant]
  7. METOPROLOL TARTRATE [Concomitant]
  8. NORVASC [Concomitant]
  9. RISPERDAL [Concomitant]
     Indication: SCHIZOPHRENIA
     Route: 048

REACTIONS (1)
  - RENAL FAILURE [None]
